FAERS Safety Report 18453303 (Version 7)
Quarter: 2021Q1

REPORT INFORMATION
  Report Type: Report from Study
  Country: JP (occurrence: JP)
  Receive Date: 20201102
  Receipt Date: 20210126
  Transmission Date: 20210419
  Serious: Yes (Hospitalization)
  Sender: FDA-Public Use
  Company Number: JP-EISAI MEDICAL RESEARCH-EC-2020-082826

PATIENT
  Age: 53 Year
  Sex: Female
  Weight: 57 kg

DRUGS (19)
  1. LENVATINIB [Suspect]
     Active Substance: LENVATINIB
     Indication: BILE DUCT CANCER
     Route: 048
     Dates: start: 20201006, end: 20201016
  2. SENNOSIDE [Concomitant]
     Active Substance: SENNOSIDES
     Indication: CONSTIPATION
     Route: 048
     Dates: start: 20201029
  3. LENVATINIB [Suspect]
     Active Substance: LENVATINIB
     Dates: start: 20201020, end: 20201024
  4. LANSOPRAZOLE OD [Concomitant]
     Active Substance: LANSOPRAZOLE
     Indication: PROPHYLAXIS
  5. MAGMITT [Concomitant]
     Active Substance: MAGNESIUM OXIDE
     Indication: CONSTIPATION
     Route: 048
     Dates: start: 20201029
  6. HIRUDOID [Concomitant]
     Active Substance: GLYCOSAMINOGLYCANS
     Indication: PROPHYLAXIS
     Route: 062
  7. AMLODIPINE [Concomitant]
     Active Substance: AMLODIPINE BESYLATE
     Indication: HYPERTENSION
     Route: 048
     Dates: start: 20201014, end: 20201023
  8. DAIPHEN [Concomitant]
     Active Substance: SULFAMETHOXAZOLE\TRIMETHOPRIM
     Indication: INFECTION PROPHYLAXIS
     Route: 048
     Dates: start: 20201030
  9. ANTEBATE [Concomitant]
     Active Substance: BETAMETHASONE DIPROPIONATE
     Indication: PROPHYLAXIS
  10. CANDESARTAN OD [Concomitant]
     Active Substance: CANDESARTAN
     Indication: HYPERTENSION
     Dates: start: 20201006, end: 20201023
  11. NATEGLINIDE. [Concomitant]
     Active Substance: NATEGLINIDE
     Indication: HYPERGLYCAEMIA
     Route: 048
     Dates: start: 20201029
  12. LIPACREON [Concomitant]
     Active Substance: PANCRELIPASE
     Indication: ANOMALOUS ARRANGEMENT OF PANCREATICOBILIARY DUCT
  13. CALONAL [Concomitant]
     Active Substance: ACETAMINOPHEN
     Indication: PYREXIA
     Route: 048
     Dates: start: 20201020
  14. NIVOLUMAB [Suspect]
     Active Substance: NIVOLUMAB
     Indication: BILE DUCT CANCER
     Route: 041
     Dates: start: 20201006, end: 20201020
  15. BILANOA [Concomitant]
     Active Substance: BILASTINE
     Indication: PROPHYLAXIS
  16. URSO [Concomitant]
     Active Substance: URSODIOL
     Indication: ANOMALOUS ARRANGEMENT OF PANCREATICOBILIARY DUCT
  17. CANDESARTAN OD [Concomitant]
     Active Substance: CANDESARTAN
     Dates: start: 20201030
  18. PREDNISOLONE. [Concomitant]
     Active Substance: PREDNISOLONE
     Indication: ERYTHEMA MULTIFORME
     Route: 048
     Dates: start: 20201106
  19. BROTIZOLAM OD [Concomitant]
     Active Substance: BROTIZOLAM
     Indication: INSOMNIA
     Route: 048
     Dates: start: 20201116

REACTIONS (2)
  - Erythema multiforme [Recovered/Resolved]
  - Pulmonary embolism [Recovering/Resolving]

NARRATIVE: CASE EVENT DATE: 20201025
